FAERS Safety Report 10806854 (Version 1)
Quarter: 2015Q1

REPORT INFORMATION
  Report Type: Report from Study
  Country: US (occurrence: US)
  Receive Date: 20150217
  Receipt Date: 20150217
  Transmission Date: 20150721
  Serious: No
  Sender: FDA-Public Use
  Company Number: US-ABBVIE-14K-163-1251300-00

PATIENT
  Age: 56 Year
  Sex: Male

DRUGS (2)
  1. HUMIRA [Suspect]
     Active Substance: ADALIMUMAB
     Indication: PSORIASIS
     Dates: start: 20140606, end: 20140606
  2. HUMIRA [Suspect]
     Active Substance: ADALIMUMAB
     Dates: start: 20140614

REACTIONS (2)
  - Fatigue [Not Recovered/Not Resolved]
  - Psoriasis [Unknown]

NARRATIVE: CASE EVENT DATE: 201406
